FAERS Safety Report 4691128-X (Version None)
Quarter: 2005Q2

REPORT INFORMATION
  Report Type: 
  Country: None (occurrence: None)
  Receive Date: 20050610
  Receipt Date: 20050525
  Transmission Date: 20051028
  Serious: Yes (Other)
  Sender: FDA-Public Use
  Company Number: DSA_26584_2005

PATIENT
  Age: 68 Year
  Sex: Female

DRUGS (4)
  1. DILTIAZEM HCL [Suspect]
     Dosage: 200 MG Q DAY PO
     Route: 048
     Dates: start: 20050124, end: 20050125
  2. ADIZEM [Suspect]
     Dosage: PO
     Route: 048
     Dates: start: 20050126, end: 20050217
  3. ZOTON [Suspect]
     Dosage: 30 MG QD PO
     Route: 048
     Dates: start: 20050124, end: 20050125
  4. OMEPRAZOLE [Suspect]
     Dosage: 20 MG Q DAY PO
     Route: 048
     Dates: start: 20050126, end: 20050217

REACTIONS (3)
  - DRUG ERUPTION [None]
  - RASH MORBILLIFORM [None]
  - RASH PRURITIC [None]
